FAERS Safety Report 24461567 (Version 1)
Quarter: 2024Q4

REPORT INFORMATION
  Report Type: Report from Study
  Country: US (occurrence: US)
  Receive Date: 20241018
  Receipt Date: 20241018
  Transmission Date: 20250114
  Serious: No
  Sender: ROCHE
  Company Number: US-ROCHE-3564703

PATIENT
  Age: 66 Year
  Sex: Female

DRUGS (20)
  1. RITUXAN [Suspect]
     Active Substance: RITUXIMAB
     Indication: Anti-neutrophil cytoplasmic antibody positive vasculitis
     Dosage: FIRST DOSE, SECOND DOSE AFTER TWO WEEKS AND THEN ONCE IN EVERY SINCE MONTHS
     Route: 041
  2. SYNTHROID [Concomitant]
     Active Substance: LEVOTHYROXINE SODIUM
  3. TAVNEOS [Concomitant]
     Active Substance: AVACOPAN
  4. COZAAR [Concomitant]
     Active Substance: LOSARTAN POTASSIUM
  5. PROVENTIL [Concomitant]
     Active Substance: ALBUTEROL
     Dosage: 2.5 MG/3 ML
  6. MICROZIDE (UNITED STATES) [Concomitant]
  7. OXYGEN [Concomitant]
     Active Substance: OXYGEN
  8. SODIUM BICARBONATE [Concomitant]
     Active Substance: SODIUM BICARBONATE
  9. TUMS [Concomitant]
     Active Substance: CALCIUM CARBONATE
  10. COENZYME Q10 [Concomitant]
     Active Substance: DIETARY SUPPLEMENT\UBIDECARENONE
     Dosage: SOLID
     Route: 048
  11. CLARITIN [Concomitant]
     Active Substance: LORATADINE
  12. NORVASC [Concomitant]
     Active Substance: AMLODIPINE BESYLATE
  13. MODERNA COVID-19 VACCINE [Concomitant]
     Active Substance: ELASOMERAN
     Dates: start: 20221017
  14. INFLUENZA VIRUS VACCINE [Concomitant]
     Active Substance: INFLUENZA VIRUS VACCINE
     Dosage: 04/OCT/2021,  AND 17/OCT/2016
     Dates: start: 20141020
  15. PNEUMOCOCCAL VACCINE CONJ 20V (CRM197) [Concomitant]
     Dates: start: 20230206
  16. PNEUMOVAX 23 [Concomitant]
     Active Substance: PNEUMOCOCCAL VACCINE, POLYVALENT 23
     Dates: start: 20011220
  17. TETANUS TOXOID, REDUCED DIPHTHERIA TOXOID AND ACELLULAR PERTUSSIS VACC [Concomitant]
     Active Substance: TETANUS TOXOID, REDUCED DIPHTHERIA TOXOID AND ACELLULAR PERTUSSIS VACCINE ADSORBED, TDAP
     Dates: start: 20220418
  18. TETANUS TOXOID ADSORBED (VACCINE) [Concomitant]
     Active Substance: CLOSTRIDIUM TETANI TOXOID ANTIGEN (FORMALDEHYDE INACTIVATED)
     Dates: start: 20020326
  19. ZOSTER [Concomitant]
     Dosage: 21/AUG/2020
     Dates: start: 20201104
  20. FLUCELVAX NOS [Concomitant]
     Active Substance: INFLUENZA A VIRUS A/BRISBANE/10/2010 (H1N1) ANTIGEN (MDCK CELL DERIVED, PROPIOLACTONE INACTIVATED)\I
     Dates: start: 20221017

REACTIONS (6)
  - Anaemia [Unknown]
  - Aortic root enlargement procedure [Unknown]
  - Chronic kidney disease [Unknown]
  - Proteinuria [Unknown]
  - Hypertension [Unknown]
  - Hypothyroidism [Unknown]
